FAERS Safety Report 6060566-5 (Version None)
Quarter: 2009Q1

REPORT INFORMATION
  Report Type: 
  Country: None (occurrence: None)
  Receive Date: 20090130
  Receipt Date: 20090130
  Transmission Date: 20090719
  Serious: No
  Sender: FDA-Public Use
  Company Number: None

PATIENT

DRUGS (1)
  1. BACTRIM DS [Suspect]
     Indication: GASTRITIS
     Dosage: 800 MG TWICE A DAY MOUTH
     Route: 048
     Dates: start: 20081226, end: 20081228

REACTIONS (2)
  - EATING DISORDER [None]
  - PAROSMIA [None]
